FAERS Safety Report 6504956-2 (Version None)
Quarter: 2009Q4

REPORT INFORMATION
  Report Type: 
  Country: None (occurrence: None)
  Receive Date: 20091216
  Receipt Date: 20091201
  Transmission Date: 20100525
  Serious: Yes (Death, Hospitalization)
  Sender: FDA-Public Use
  Company Number: TRP_02052_2008

PATIENT
  Sex: Female
  Weight: 53 kg

DRUGS (6)
  1. ADVAFERON [Suspect]
     Indication: HEPATITIS C
     Dosage: (18 MILLION IU QD, UID SUBCUTANEOUS)
     Route: 058
     Dates: start: 20040122, end: 20040619
  2. FUNGUARD (FUNGUARD - MICAFUNGIN) (NOT SPECIFIED) [Suspect]
     Indication: INTERSTITIAL LUNG DISEASE
     Dosage: (150 MG, UNKNOWN/D INTRAVENOUS (NOT OTHERWISE SPECIFIED))
     Route: 042
     Dates: start: 20060504
  3. PEGASYS [Suspect]
     Indication: DRUG USE FOR UNKNOWN INDICATION
     Dosage: INTRAVENOUS (NOT OTHERWISE SPECIFIED)
     Route: 042
     Dates: start: 20051101, end: 20060420
  4. STEROID ANTIBACTERIALS [Concomitant]
  5. INSULIN [Concomitant]
  6. FASTIC [Concomitant]

REACTIONS (8)
  - ENTEROCOCCAL INFECTION [None]
  - GENERAL PHYSICAL HEALTH DETERIORATION [None]
  - HAEMOPHILUS INFECTION [None]
  - INTERSTITIAL LUNG DISEASE [None]
  - PNEUMONIA [None]
  - RESPIRATORY FAILURE [None]
  - SPUTUM CULTURE POSITIVE [None]
  - STAPHYLOCOCCAL INFECTION [None]
